FAERS Safety Report 9133253 (Version 1)
Quarter: 2013Q1

REPORT INFORMATION
  Report Type: Report from Study
  Country: US (occurrence: US)
  Receive Date: 20130301
  Receipt Date: 20130301
  Transmission Date: 20140127
  Serious: Yes (Other)
  Sender: FDA-Public Use
  Company Number: US-ABBOTT-13P-163-1053215-00

PATIENT
  Age: 66 Year
  Sex: Male

DRUGS (17)
  1. HUMIRA [Suspect]
     Indication: PSORIASIS
     Dates: start: 201211
  2. LISINOPRIL HCTZ [Concomitant]
     Indication: HYPERTENSION
     Dosage: 10/12.5 MG
  3. ATENOLOL [Concomitant]
     Indication: PRODUCT USED FOR UNKNOWN INDICATION
  4. FINASTERIDE [Concomitant]
     Indication: POLLAKIURIA
  5. FINASTERIDE [Concomitant]
     Indication: PROSTATIC DISORDER
  6. TRIAMCINOLONE ACETATE [Concomitant]
     Indication: PSORIASIS
  7. FLUTICASONE PROPIONATE [Concomitant]
     Indication: HYPERSENSITIVITY
  8. PRILOSEC [Concomitant]
     Indication: GASTROOESOPHAGEAL REFLUX DISEASE
  9. MULTIVITAMIN [Concomitant]
     Indication: VITAMIN SUPPLEMENTATION
  10. FISH OIL [Concomitant]
     Indication: SUPPLEMENTATION THERAPY
  11. VIT D [Concomitant]
     Indication: VITAMIN SUPPLEMENTATION
  12. VITAMIN E [Concomitant]
     Indication: VITAMIN SUPPLEMENTATION
  13. ASPIRIN [Concomitant]
     Indication: SUPPLEMENTATION THERAPY
  14. GINSENG [Concomitant]
     Indication: SUPPLEMENTATION THERAPY
  15. CHROMIUM PICOLINATE [Concomitant]
     Indication: SUPPLEMENTATION THERAPY
  16. SALPAMENTO [Concomitant]
     Indication: SUPPLEMENTATION THERAPY
  17. ALOE VERA [Concomitant]
     Indication: SUPPLEMENTATION THERAPY

REACTIONS (4)
  - Erythema [Not Recovered/Not Resolved]
  - Squamous cell carcinoma [Not Recovered/Not Resolved]
  - Sinusitis [Recovered/Resolved]
  - Feeling abnormal [Not Recovered/Not Resolved]
